FAERS Safety Report 13708363 (Version 1)
Quarter: 2017Q2

REPORT INFORMATION
  Report Type: Report from Study
  Country: US (occurrence: US)
  Receive Date: 20170630
  Receipt Date: 20170630
  Transmission Date: 20170830
  Serious: Yes (Other)
  Sender: FDA-Public Use
  Company Number: US-JNJFOC-20160623232

PATIENT
  Age: 86 Year
  Sex: Male

DRUGS (9)
  1. IMBRUVICA [Suspect]
     Active Substance: IBRUTINIB
     Indication: CHRONIC LYMPHOCYTIC LEUKAEMIA
     Route: 048
     Dates: start: 201606
  2. VITAMIN B12 [Concomitant]
     Active Substance: CYANOCOBALAMIN
  3. TOPIRAMATE. [Concomitant]
     Active Substance: TOPIRAMATE
  4. IMBRUVICA [Suspect]
     Active Substance: IBRUTINIB
     Indication: CHRONIC LYMPHOCYTIC LEUKAEMIA
     Route: 048
     Dates: start: 20160613
  5. TRAMADOL. [Concomitant]
     Active Substance: TRAMADOL
  6. IMBRUVICA [Suspect]
     Active Substance: IBRUTINIB
     Indication: CHRONIC LYMPHOCYTIC LEUKAEMIA
     Route: 048
     Dates: start: 20160606
  7. FIORICET [Concomitant]
     Active Substance: ACETAMINOPHEN\BUTALBITAL\CAFFEINE
  8. CYCLOBENZAPRINE. [Concomitant]
     Active Substance: CYCLOBENZAPRINE
  9. TAMSULOSIN [Concomitant]
     Active Substance: TAMSULOSIN

REACTIONS (27)
  - Decreased appetite [Unknown]
  - Asthenia [Recovering/Resolving]
  - Platelet count increased [Recovering/Resolving]
  - Blepharitis [Unknown]
  - Constipation [Unknown]
  - Gastrointestinal infection [Not Recovered/Not Resolved]
  - Escherichia infection [Not Recovered/Not Resolved]
  - Platelet count decreased [Recovering/Resolving]
  - Cerebrovascular accident [Not Recovered/Not Resolved]
  - Haemoglobin increased [Recovering/Resolving]
  - Eye disorder [Unknown]
  - White blood cell count increased [Recovering/Resolving]
  - Haematocrit increased [Recovering/Resolving]
  - Gastrointestinal tract irritation [Not Recovered/Not Resolved]
  - Hernia [Unknown]
  - Fatigue [Unknown]
  - Red blood cell count decreased [Recovering/Resolving]
  - Diarrhoea [Unknown]
  - Salmonellosis [Not Recovered/Not Resolved]
  - Feeling abnormal [Unknown]
  - Haemorrhoidal haemorrhage [Unknown]
  - Clostridium difficile infection [Not Recovered/Not Resolved]
  - Incorrect dosage administered [Unknown]
  - Eating disorder [Not Recovered/Not Resolved]
  - Headache [Not Recovered/Not Resolved]
  - Abdominal pain upper [Not Recovered/Not Resolved]
  - Off label use [Unknown]

NARRATIVE: CASE EVENT DATE: 2016
